FAERS Safety Report 4811217-6 (Version None)
Quarter: 2005Q4

REPORT INFORMATION
  Report Type: 
  Country: None (occurrence: None)
  Receive Date: 20051026
  Receipt Date: 20051026
  Transmission Date: 20060501
  Serious: Yes (Death)
  Sender: FDA-Public Use
  Company Number: None

PATIENT
  Sex: Male
  Weight: 64.7 kg

DRUGS (1)
  1. DEFIBROTIDE 20 - 30 MG/KG/DAY (Q6H) [Suspect]
     Indication: VENOOCCLUSIVE LIVER DISEASE
     Dosage: 20 - 30 MG/KG/DAY
     Dates: start: 20050924, end: 20051007

REACTIONS (6)
  - ASCITES [None]
  - GALLBLADDER DISORDER [None]
  - HEPATIC CYST [None]
  - HEPATIC MASS [None]
  - HEPATOMEGALY [None]
  - ULTRASOUND LIVER ABNORMAL [None]
